FAERS Safety Report 5487498-5 (Version None)
Quarter: 2007Q4

REPORT INFORMATION
  Report Type: 
  Country: None (occurrence: None)
  Receive Date: 20071016
  Receipt Date: 20071004
  Transmission Date: 20080405
  Serious: Yes (Hospitalization)
  Sender: FDA-Public Use
  Company Number: GB-PFIZER INC-2007083881

PATIENT
  Age: 62 Year
  Sex: Female

DRUGS (1)
  1. GABAPENTIN [Suspect]
     Indication: VULVOVAGINAL DISCOMFORT
     Route: 048

REACTIONS (6)
  - CHEST PAIN [None]
  - COORDINATION ABNORMAL [None]
  - HEADACHE [None]
  - THROAT TIGHTNESS [None]
  - TINNITUS [None]
  - VISION BLURRED [None]
